FAERS Safety Report 6641554-4 (Version None)
Quarter: 2010Q1

REPORT INFORMATION
  Report Type: 
  Country: None (occurrence: None)
  Receive Date: 20100317
  Receipt Date: 20100317
  Transmission Date: 20100710
  Serious: Yes (Other)
  Sender: FDA-Public Use
  Company Number: None

PATIENT
  Age: 75 Year
  Sex: Female
  Weight: 57 kg

DRUGS (15)
  1. HEPARIN [Suspect]
     Indication: THROMBOSIS PROPHYLAXIS
     Dosage: 5000 UNITS Q8O SQ
     Route: 058
     Dates: start: 20100121, end: 20100123
  2. APAP TAB [Concomitant]
  3. ASPIRIN [Concomitant]
  4. ATORVASTATIN CALCIUM [Concomitant]
  5. BISACODYL [Concomitant]
  6. CEFEPIME [Concomitant]
  7. DIGOXIN [Concomitant]
  8. DOCUSATE [Concomitant]
  9. HYDROMORPHONE HCL [Concomitant]
  10. ASPART [Concomitant]
  11. LORAZEPAM [Concomitant]
  12. METOPROLOL TARTRATE [Concomitant]
  13. METRONIDAZOLE [Concomitant]
  14. OXYCODONE HCL [Concomitant]
  15. VANCOMYCIN [Concomitant]

REACTIONS (2)
  - HEPARIN-INDUCED THROMBOCYTOPENIA [None]
  - RENAL IMPAIRMENT [None]
